FAERS Safety Report 9288210 (Version 5)
Quarter: 2014Q3

REPORT INFORMATION
  Report Type: Spontaneous
  Country: GB (occurrence: None)
  Receive Date: 20130510
  Receipt Date: 20140821
  Transmission Date: 20150326
  Serious: Yes (Death, Other)
  Sender: FDA-Public Use
  Company Number: AUR-APL-2013-03849

PATIENT
  Age: 65 Year
  Sex: Female
  Weight: 63.5 kg

DRUGS (3)
  1. FLUOXETINE [Suspect]
     Active Substance: FLUOXETINE\FLUOXETINE HYDROCHLORIDE
     Indication: INSOMNIA
     Route: 048
     Dates: start: 20120423, end: 20120503
  2. MIRTAZAPINE FILM-COATED TABLETS 15MG (MIRTAZAPINE) FILM-COATED TABLET, 15MG [Suspect]
     Active Substance: MIRTAZAPINE
     Indication: INSOMNIA
     Dosage: 15 MG, 1 IN 1 D, UNKNOWN
     Dates: start: 20130329
  3. ZOPICLONE [Concomitant]
     Active Substance: ZOPICLONE

REACTIONS (22)
  - Insomnia [None]
  - Emotional distress [None]
  - Dry eye [None]
  - Feeling of despair [None]
  - Panic reaction [None]
  - Completed suicide [None]
  - Agitation [None]
  - Depression [None]
  - Sedation [None]
  - Anxiety [None]
  - Somatisation disorder [None]
  - Dizziness [None]
  - Social avoidant behaviour [None]
  - Drug effect decreased [None]
  - Dissociation [None]
  - Malaise [None]
  - Fear [None]
  - Initial insomnia [None]
  - Feeling abnormal [None]
  - Depressed mood [None]
  - Asthenopia [None]
  - Negative thoughts [None]

NARRATIVE: CASE EVENT DATE: 20120212
